FAERS Safety Report 25349389 (Version 3)
Quarter: 2025Q2

REPORT INFORMATION
  Report Type: Report from Study
  Country: US (occurrence: US)
  Receive Date: 20250522
  Receipt Date: 20250616
  Transmission Date: 20250716
  Serious: Yes (Hospitalization, Other)
  Sender: MALLINCKRODT
  Company Number: US-MALLINCKRODT-MNK202502939

PATIENT
  Age: 62 Year
  Sex: Female

DRUGS (1)
  1. CORTICOTROPIN [Suspect]
     Active Substance: CORTICOTROPIN
     Indication: Illness
     Route: 058

REACTIONS (5)
  - Hospitalisation [Unknown]
  - Eye excision [Unknown]
  - Eye infection [Unknown]
  - Depression [Unknown]
  - Insomnia [Unknown]

NARRATIVE: CASE EVENT DATE: 20250501
